FAERS Safety Report 14076826 (Version 1)
Quarter: 2017Q4

REPORT INFORMATION
  Report Type: Spontaneous
  Country: US (occurrence: US)
  Receive Date: 20171011
  Receipt Date: 20171011
  Transmission Date: 20180321
  Serious: Yes (Other)
  Sender: FDA-Public Use
  Company Number: US-009507513-1710USA001672

PATIENT
  Sex: Female

DRUGS (1)
  1. PREGNYL [Suspect]
     Active Substance: CHORIOGONADOTROPIN ALFA
     Indication: WEIGHT DECREASED
     Dosage: 4 TIMES OVER A PERIOD OF 12 DAYS
     Route: 030
     Dates: start: 20170921

REACTIONS (4)
  - Weight decreased [Recovered/Resolved]
  - Drug effective for unapproved indication [Unknown]
  - Product use in unapproved indication [Unknown]
  - Starvation [Unknown]

NARRATIVE: CASE EVENT DATE: 20170921
